FAERS Safety Report 7363985-X (Version None)
Quarter: 2011Q1

REPORT INFORMATION
  Report Type: 
  Country: None (occurrence: None)
  Receive Date: 20110321
  Receipt Date: 20100908
  Transmission Date: 20110831
  Serious: Yes (Death)
  Sender: FDA-Public Use
  Company Number: US-TYCO HEALTHCARE/MALLINCKRODT-T201001947

PATIENT
  Age: 36 Year
  Sex: Female

DRUGS (4)
  1. OXYCODONE [Suspect]
     Dosage: UNK
  2. MORPHINE [Suspect]
     Dosage: UNK
  3. METHADOSE [Suspect]
     Dosage: UNK
  4. VALIUM [Suspect]
     Dosage: UNK

REACTIONS (1)
  - OPIATE TOXICITY [None]
